FAERS Safety Report 8315120-9 (Version None)
Quarter: 2012Q2

REPORT INFORMATION
  Report Type: 
  Country: None (occurrence: None)
  Receive Date: 20120426
  Receipt Date: 20120416
  Transmission Date: 20120825
  Serious: Yes (Other)
  Sender: FDA-Public Use
  Company Number: JP-VERTEX PHARMACEUTICALS INC.-AE-2012-005685

PATIENT
  Age: 57 Year
  Sex: Male

DRUGS (6)
  1. PEGINTERFERON ALFA-2B [Concomitant]
     Indication: HEPATITIS C
     Route: 051
     Dates: start: 20120301
  2. MAGMITT [Concomitant]
     Route: 048
     Dates: start: 20120311
  3. TELAVIC (TELAPREVIR) [Suspect]
     Route: 048
     Dates: start: 20120405
  4. TELAVIC (TELAPREVIR) [Suspect]
     Indication: HEPATITIS C
     Route: 048
     Dates: start: 20120301, end: 20120404
  5. RIBAVIRIN [Concomitant]
     Indication: HEPATITIS C
     Route: 048
     Dates: start: 20120301, end: 20120311
  6. RIBAVIRIN [Concomitant]
     Route: 048
     Dates: start: 20120312

REACTIONS (2)
  - ERYTHEMA MULTIFORME [None]
  - LOSS OF CONSCIOUSNESS [None]
